FAERS Safety Report 25703293 (Version 2)
Quarter: 2025Q3

REPORT INFORMATION
  Report Type: Report from Study
  Country: US (occurrence: US)
  Receive Date: 20250820
  Receipt Date: 20250831
  Transmission Date: 20251021
  Serious: No
  Sender: ABBVIE
  Company Number: US-ABBVIE-6378516

PATIENT
  Age: 72 Year
  Sex: Female

DRUGS (1)
  1. RINVOQ [Suspect]
     Active Substance: UPADACITINIB
     Indication: Crohn^s disease
     Dosage: FORM STRENGTH: 15 MG
     Route: 048
     Dates: start: 20240603

REACTIONS (2)
  - COVID-19 [Unknown]
  - Balance disorder [Unknown]

NARRATIVE: CASE EVENT DATE: 20250701
